FAERS Safety Report 17744709 (Version 1)
Quarter: 2020Q2

REPORT INFORMATION
  Report Type: Spontaneous
  Country: US (occurrence: US)
  Receive Date: 20200504
  Receipt Date: 20200504
  Transmission Date: 20200714
  Serious: Yes (Death)
  Sender: FDA-Public Use
  Company Number: None

PATIENT
  Age: 75 Year
  Sex: Female
  Weight: 58.3 kg

DRUGS (1)
  1. YESCARTA [Suspect]
     Active Substance: AXICABTAGENE CILOLEUCEL
     Indication: NON-HODGKIN^S LYMPHOMA
     Dosage: ?          OTHER ROUTE:IV?
     Dates: start: 20200211, end: 20200211

REACTIONS (4)
  - Neurotoxicity [None]
  - Infarction [None]
  - Hyponatraemia [None]
  - Cytokine release syndrome [None]

NARRATIVE: CASE EVENT DATE: 20200224
